FAERS Safety Report 18273357 (Version 1)
Quarter: 2020Q3

REPORT INFORMATION
  Report Type: Spontaneous
  Country: US (occurrence: US)
  Receive Date: 20200916
  Receipt Date: 20200916
  Transmission Date: 20201103
  Serious: No
  Sender: FDA-Public Use
  Company Number: US-THERAPEUTICSMD-2020TMD03246

PATIENT
  Age: 70 Year
  Sex: Female
  Weight: 52.15 kg

DRUGS (4)
  1. IMVEXXY [Suspect]
     Active Substance: ESTRADIOL
     Indication: BURNING SENSATION
  2. IMVEXXY [Suspect]
     Active Substance: ESTRADIOL
     Indication: BURNING SENSATION
  3. IMVEXXY [Suspect]
     Active Substance: ESTRADIOL
     Indication: MENOPAUSAL SYMPTOMS
     Dosage: 4 ?G, 2X/WEEK
     Route: 067
     Dates: start: 2020
  4. IMVEXXY [Suspect]
     Active Substance: ESTRADIOL
     Indication: MENOPAUSAL SYMPTOMS
     Dosage: 10 ?G, 2X/WEEK
     Route: 067
     Dates: start: 2020, end: 2020

REACTIONS (12)
  - Alopecia [Not Recovered/Not Resolved]
  - Madarosis [Not Recovered/Not Resolved]
  - Dyspnoea [Unknown]
  - Heart rate increased [Unknown]
  - Eye haemorrhage [Recovered/Resolved]
  - Product use complaint [Not Recovered/Not Resolved]
  - Unevaluable event [Unknown]
  - Off label use [Not Recovered/Not Resolved]
  - Spinal osteoarthritis [Unknown]
  - Fibromyalgia [Unknown]
  - Headache [Recovering/Resolving]
  - Product dose omission issue [Recovered/Resolved]

NARRATIVE: CASE EVENT DATE: 2020
